FAERS Safety Report 12888738 (Version 1)
Quarter: 2016Q4

REPORT INFORMATION
  Report Type: Spontaneous
  Country: JP (occurrence: JP)
  Receive Date: 20161027
  Receipt Date: 20161027
  Transmission Date: 20170207
  Serious: Yes (Other)
  Sender: FDA-Public Use
  Company Number: JP-GLAXOSMITHKLINE-JP2016JPN156045

PATIENT
  Sex: Female

DRUGS (1)
  1. FLUTIDE DISKUS [Suspect]
     Active Substance: FLUTICASONE PROPIONATE
     Indication: ASTHMA
     Dosage: UNK
     Route: 055

REACTIONS (3)
  - Gait disturbance [Unknown]
  - Intentional product misuse [Unknown]
  - Coronary artery stenosis [Unknown]

NARRATIVE: CASE EVENT DATE: 201505
